FAERS Safety Report 14120162 (Version 1)
Quarter: 2017Q4

REPORT INFORMATION
  Report Type: Spontaneous
  Country: US (occurrence: US)
  Receive Date: 20171024
  Receipt Date: 20171024
  Transmission Date: 20180321
  Serious: Yes (Disabling)
  Sender: FDA-Public Use
  Company Number: None

PATIENT
  Age: 36 Year
  Sex: Female
  Weight: 63 kg

DRUGS (2)
  1. ANTIBIOTICS [Concomitant]
     Active Substance: UNSPECIFIED INGREDIENT
  2. LEVOFLOXACIN. [Suspect]
     Active Substance: LEVOFLOXACIN
     Indication: INFECTION
     Dosage: ?          QUANTITY:1 TABLET(S);?
     Route: 048
     Dates: start: 20170922, end: 20170929

REACTIONS (8)
  - Musculoskeletal disorder [None]
  - Loss of personal independence in daily activities [None]
  - Quality of life decreased [None]
  - Pain [None]
  - Gait disturbance [None]
  - Movement disorder [None]
  - Middle insomnia [None]
  - Feeling abnormal [None]

NARRATIVE: CASE EVENT DATE: 20170930
